FAERS Safety Report 8711189 (Version 2)
Quarter: 2012Q4

REPORT INFORMATION
  Report Type: 
  Country: US (occurrence: US)
  Receive Date: 20120807
  Receipt Date: 20120906
  Transmission Date: 20130627
  Serious: Yes (Other)
  Sender: FDA-Public Use
  Company Number: US-JNJFOC-20120801054

PATIENT
  Age: 57 None
  Sex: Male
  Weight: 99.79 kg

DRUGS (8)
  1. STELARA [Suspect]
     Indication: PSORIASIS
     Route: 058
     Dates: start: 20120418
  2. STELARA [Suspect]
     Indication: PSORIASIS
     Route: 058
     Dates: start: 20120328
  3. STELARA [Suspect]
     Indication: PSORIASIS
     Route: 058
     Dates: start: 20120302
  4. BABY ASA [Concomitant]
     Dosage: ^T-QD^
     Route: 065
  5. FISH OIL [Concomitant]
     Route: 065
  6. VITAMIN B [Concomitant]
     Route: 065
  7. MELATONIN [Concomitant]
     Dosage: at every night
     Route: 065
  8. MUTIVITAMINS [Concomitant]
     Route: 065

REACTIONS (2)
  - Cellulitis [Recovered/Resolved]
  - Drug dose omission [Recovered/Resolved]
